FAERS Safety Report 5212915-5 (Version None)
Quarter: 2007Q1

REPORT INFORMATION
  Report Type: 
  Country: None (occurrence: None)
  Receive Date: 20070119
  Receipt Date: 20070110
  Transmission Date: 20070707
  Serious: Yes (Other)
  Sender: FDA-Public Use
  Company Number: 2007UW00582

PATIENT
  Age: 31 Year
  Sex: Female

DRUGS (3)
  1. SEROQUEL [Suspect]
     Route: 048
     Dates: start: 20061231
  2. LITHIUM CARBONATE [Suspect]
  3. KLONOPIN [Suspect]

REACTIONS (2)
  - CONVULSION [None]
  - NEUROTOXICITY [None]
